FAERS Safety Report 10688516 (Version 2)
Quarter: 2015Q1

REPORT INFORMATION
  Report Type: Spontaneous
  Country: FR (occurrence: FR)
  Receive Date: 20150102
  Receipt Date: 20150102
  Transmission Date: 20150720
  Serious: Yes (Other)
  Sender: FDA-Public Use
  Company Number: FR-009507513-1412FRA004267

PATIENT
  Age: 45 Year
  Sex: Male

DRUGS (2)
  1. ISENTRESS [Suspect]
     Active Substance: RALTEGRAVIR POTASSIUM
     Indication: HIV INFECTION
     Dosage: 2 TABLETS DAILY, TOTAL DAILY DOSE 800 MG
     Route: 048
     Dates: start: 20110208, end: 20110503
  2. REYATAZ [Suspect]
     Active Substance: ATAZANAVIR SULFATE
     Indication: HIV INFECTION
     Dosage: 1 TABLET DAILY, TOTAL DAILY DOSE 400 MG
     Route: 048
     Dates: start: 20110208

REACTIONS (1)
  - Loss of libido [Recovered/Resolved]

NARRATIVE: CASE EVENT DATE: 20110308
